FAERS Safety Report 4417928-9 (Version None)
Quarter: 2004Q3

REPORT INFORMATION
  Report Type: 
  Country: None (occurrence: None)
  Receive Date: 20040802
  Receipt Date: 20040720
  Transmission Date: 20050211
  Serious: Yes (Hospitalization)
  Sender: FDA-Public Use
  Company Number: 2004AP02869

PATIENT
  Sex: Male

DRUGS (5)
  1. CASODEX [Suspect]
     Indication: PROSTATE CANCER
     Dosage: 80 MG DAILY PO
     Route: 048
  2. ADALAT [Concomitant]
  3. COVERSYL [Concomitant]
  4. EXCEGRAN [Concomitant]
  5. TEGRETOL [Concomitant]

REACTIONS (3)
  - LYMPHOCYTE COUNT DECREASED [None]
  - OPPORTUNISTIC INFECTION [None]
  - PNEUMONIA CHLAMYDIAL [None]
